FAERS Safety Report 5190175-1 (Version None)
Quarter: 2006Q4

REPORT INFORMATION
  Report Type: 
  Country: None (occurrence: None)
  Receive Date: 20061222
  Receipt Date: 20060616
  Transmission Date: 20070319
  Serious: Yes (Other)
  Sender: FDA-Public Use
  Company Number: PHEH2006US07883

PATIENT
  Age: 54 Year
  Sex: Female

DRUGS (4)
  1. ZOMETA [Suspect]
     Indication: MULTIPLE MYELOMA
     Dosage: EVERY MONTH
     Dates: start: 20000101, end: 20060801
  2. CHEMOTHERAPEUTICS,OTHER [Concomitant]
  3. CORTICOSTEROIDS [Concomitant]
  4. AREDIA [Suspect]
     Indication: MULTIPLE MYELOMA
     Dates: start: 19990101, end: 20000101

REACTIONS (7)
  - BONE DISORDER [None]
  - IMPAIRED HEALING [None]
  - ORAL SOFT TISSUE DISORDER [None]
  - PAIN [None]
  - SOFT TISSUE INFECTION [None]
  - TOOTH DISORDER [None]
  - TOOTH EXTRACTION [None]
